FAERS Safety Report 6975786-2 (Version None)
Quarter: 2010Q3

REPORT INFORMATION
  Report Type: 
  Country: None (occurrence: None)
  Receive Date: 20100910
  Receipt Date: 20090326
  Transmission Date: 20110219
  Serious: No
  Sender: FDA-Public Use
  Company Number: US-WYE-H08734709

PATIENT
  Age: 45 Year
  Sex: Female
  Weight: 69.46 kg

DRUGS (3)
  1. PRISTIQ [Suspect]
     Indication: DEPRESSION
     Route: 048
     Dates: start: 20090317
  2. KLONOPIN [Concomitant]
  3. NEURONTIN [Concomitant]

REACTIONS (3)
  - ABDOMINAL PAIN [None]
  - BREAST TENDERNESS [None]
  - PREMENSTRUAL SYNDROME [None]
